FAERS Safety Report 18598973 (Version 2)
Quarter: 2020Q4

REPORT INFORMATION
  Report Type: Spontaneous
  Country: US (occurrence: US)
  Receive Date: 20201210
  Receipt Date: 20201223
  Transmission Date: 20210114
  Serious: Yes (Hospitalization)
  Sender: FDA-Public Use
  Company Number: US-ACCORD-210511

PATIENT
  Sex: Female

DRUGS (2)
  1. BENADRYL [Interacting]
     Active Substance: DIPHENHYDRAMINE HYDROCHLORIDE
     Indication: PRODUCT USED FOR UNKNOWN INDICATION
  2. CLOZAPINE. [Suspect]
     Active Substance: CLOZAPINE
     Indication: PRODUCT USED FOR UNKNOWN INDICATION

REACTIONS (11)
  - Drug interaction [Unknown]
  - Loss of consciousness [Unknown]
  - Headache [Unknown]
  - Abdominal pain upper [Unknown]
  - Eye contusion [Unknown]
  - Head injury [Unknown]
  - Aspiration [Unknown]
  - Hallucination [Unknown]
  - Hypotension [Unknown]
  - Pruritus [Unknown]
  - Feeling abnormal [Unknown]
